FAERS Safety Report 7789250-4 (Version None)
Quarter: 2011Q3

REPORT INFORMATION
  Report Type: 
  Country: None (occurrence: None)
  Receive Date: 20110930
  Receipt Date: 20110923
  Transmission Date: 20111222
  Serious: Yes (Life-Threatening, Hospitalization, Other)
  Sender: FDA-Public Use
  Company Number: US-BAYER-201035975NA

PATIENT
  Age: 45 Year
  Sex: Female
  Weight: 114.29 kg

DRUGS (11)
  1. YASMIN [Suspect]
     Indication: CONTRACEPTION
     Route: 048
     Dates: start: 20030101, end: 20040201
  2. YASMIN [Suspect]
     Indication: MENSTRUAL DISORDER
  3. LAMICTAL [Concomitant]
     Dosage: 100 MG, BID
  4. VIOXX [Concomitant]
     Dosage: 50 MG, QD
  5. SINGULAIR [Concomitant]
     Dosage: 10 MG, QD
  6. ALLEGRA [Concomitant]
     Dosage: 180 MG, UNK
  7. YASMIN [Suspect]
     Indication: MENSTRUATION IRREGULAR
     Dosage: UNK
     Dates: start: 20050401
  8. YASMIN [Suspect]
     Indication: MENOPAUSAL SYMPTOMS
     Dosage: UNK
  9. DESYREL [Concomitant]
     Dosage: 180 MG, QD
  10. ALBUTEROL [Concomitant]
  11. ASPIRIN [Concomitant]
     Dosage: 81 MG, QD

REACTIONS (7)
  - THROMBOPHLEBITIS SUPERFICIAL [None]
  - CELLULITIS [None]
  - OEDEMA PERIPHERAL [None]
  - VARICOSE VEIN [None]
  - PAIN IN EXTREMITY [None]
  - ARRHYTHMIA [None]
  - DEEP VEIN THROMBOSIS [None]
